FAERS Safety Report 7225115-4 (Version None)
Quarter: 2011Q1

REPORT INFORMATION
  Report Type: 
  Country: None (occurrence: None)
  Receive Date: 20110113
  Receipt Date: 20110103
  Transmission Date: 20110831
  Serious: Yes (Congenital Anomaly)
  Sender: FDA-Public Use
  Company Number: A0680482A

PATIENT
  Sex: Female

DRUGS (3)
  1. PAXIL [Suspect]
  2. PAROXETINE HYDROCHLORIDE [Suspect]
     Dosage: 20MG UNKNOWN
     Dates: start: 20030814, end: 20041027
  3. FENTANYL-100 [Concomitant]

REACTIONS (7)
  - CONGENITAL ANOMALY [None]
  - PATENT DUCTUS ARTERIOSUS [None]
  - RESTRICTIVE CARDIOMYOPATHY [None]
  - DRUG EXPOSURE DURING PREGNANCY [None]
  - CONGENITAL PULMONARY HYPERTENSION [None]
  - VENTRICULAR SEPTAL DEFECT [None]
  - CARDIAC MURMUR [None]
